FAERS Safety Report 19862821 (Version 1)
Quarter: 2021Q3

REPORT INFORMATION
  Report Type: Other
  Country: BH (occurrence: BH)
  Receive Date: 20210921
  Receipt Date: 20210921
  Transmission Date: 20211014
  Serious: Yes (Hospitalization, Other)
  Sender: FDA-Public Use
  Company Number: BH-DEXPHARM-20211496

PATIENT
  Age: 52 Year
  Sex: Female

DRUGS (18)
  1. IPRATROPIUM BROMIDE. [Concomitant]
     Active Substance: IPRATROPIUM BROMIDE
  2. OMEPRAZOLE. [Suspect]
     Active Substance: OMEPRAZOLE
     Route: 050
  3. FLUTICASONE FUROATE/VILANTEROL [Concomitant]
     Active Substance: FLUTICASONE FUROATE\VILANTEROL TRIFENATATE
     Dosage: 1 PUFF ONCE DAILY
  4. DEXAMETHASONE. [Suspect]
     Active Substance: DEXAMETHASONE
     Route: 050
  5. ZINC. [Concomitant]
     Active Substance: ZINC
     Route: 050
  6. DEXAMETHASONE. [Suspect]
     Active Substance: DEXAMETHASONE
     Route: 050
  7. AZITHROMYCIN ANHYDROUS. [Concomitant]
     Active Substance: AZITHROMYCIN ANHYDROUS
     Route: 050
  8. PARACETAMOL [Suspect]
     Active Substance: ACETAMINOPHEN
     Route: 050
  9. METHYLPREDNISOLONE. [Concomitant]
     Active Substance: METHYLPREDNISOLONE
     Dosage: 40?60 MG EVERY 8 HOURS
     Route: 050
  10. PANTOPRAZOLE [Concomitant]
     Active Substance: PANTOPRAZOLE
  11. OMEPRAZOLE. [Suspect]
     Active Substance: OMEPRAZOLE
     Route: 050
  12. DOXYCYCLINE. [Suspect]
     Active Substance: DOXYCYCLINE
     Route: 050
  13. SALBUTAMOL [Concomitant]
     Active Substance: ALBUTEROL
  14. METOCLOPRAMIDE. [Concomitant]
     Active Substance: METOCLOPRAMIDE
     Route: 050
  15. CEFTRIAXONE. [Suspect]
     Active Substance: CEFTRIAXONE
     Route: 050
  16. ENOXAPARIN [Concomitant]
     Active Substance: ENOXAPARIN
     Dosage: 4000?12000 IU TWO TIMES PER DAY
     Route: 050
  17. PARACETAMOL [Suspect]
     Active Substance: ACETAMINOPHEN
     Route: 050
  18. VITAMIN D [Concomitant]
     Active Substance: VITAMIN D NOS
     Route: 050

REACTIONS (1)
  - Pancreatitis acute [Recovered/Resolved]
